FAERS Safety Report 16855514 (Version 1)
Quarter: 2019Q3

REPORT INFORMATION
  Report Type: Spontaneous
  Country: AT (occurrence: AT)
  Receive Date: 20190926
  Receipt Date: 20190926
  Transmission Date: 20191005
  Serious: Yes (Hospitalization, Other)
  Sender: FDA-Public Use
  Company Number: AT-AMGEN-AUTSP2019113961

PATIENT
  Age: 76 Year
  Sex: Female
  Weight: 58.4 kg

DRUGS (10)
  1. DULOXETINE. [Concomitant]
     Active Substance: DULOXETINE
  2. TRITTICO [Concomitant]
     Active Substance: TRAZODONE HYDROCHLORIDE
  3. ATENOLOL. [Concomitant]
     Active Substance: ATENOLOL
  4. VITAMINS WITH MINERALS [Concomitant]
     Active Substance: MINERALS\VITAMINS
     Dosage: UNK UNK, QD
  5. NEXIUM [Concomitant]
     Active Substance: ESOMEPRAZOLE MAGNESIUM
  6. PREGABALIN. [Concomitant]
     Active Substance: PREGABALIN
  7. MARCOUMAR [Concomitant]
     Active Substance: PHENPROCOUMON
  8. PROLIA [Suspect]
     Active Substance: DENOSUMAB
     Indication: OSTEOPOROSIS
     Dosage: 60 MILLIGRAM, Q6MO
     Route: 058
     Dates: start: 2016
  9. EZETIMIBE. [Concomitant]
     Active Substance: EZETIMIBE
  10. ALPRAZOLAM. [Concomitant]
     Active Substance: ALPRAZOLAM

REACTIONS (9)
  - Atypical femur fracture [Unknown]
  - Muscle strain [Unknown]
  - Nodal osteoarthritis [Unknown]
  - Arthropathy [Unknown]
  - Vascular operation [Unknown]
  - Bunion operation [Unknown]
  - Rib fracture [Unknown]
  - Mitral valve replacement [Unknown]
  - Fall [Unknown]

NARRATIVE: CASE EVENT DATE: 2018
